FAERS Safety Report 20790985 (Version 1)
Quarter: 2022Q2

REPORT INFORMATION
  Report Type: Spontaneous
  Country: US (occurrence: None)
  Receive Date: 20220505
  Receipt Date: 20220505
  Transmission Date: 20220720
  Serious: Yes (Life-Threatening)
  Sender: FDA-Public Use
  Company Number: None

PATIENT
  Age: 30 Year
  Sex: Male

DRUGS (11)
  1. TACROLIMUS [Suspect]
     Active Substance: TACROLIMUS
     Indication: Heart transplant
     Dosage: FREQUENCY : TWICE A DAY;?
     Route: 048
     Dates: start: 20220422
  2. MYCOPHENOLATE MOFETIL [Suspect]
     Active Substance: MYCOPHENOLATE MOFETIL
     Indication: Heart transplant
     Dosage: FREQUENCY : TWICE A DAY;?
     Route: 048
     Dates: start: 20220422
  3. Centrum multivitamin tablet [Concomitant]
     Dates: start: 20220422
  4. Nystatin 100,000U Susp [Concomitant]
     Dates: start: 20220422
  5. PRAVASTATIN [Concomitant]
     Active Substance: PRAVASTATIN
     Dates: start: 20220422
  6. PREDNISONE [Concomitant]
     Active Substance: PREDNISONE
     Dates: start: 20220422
  7. Stool Softener 100mg softgel [Concomitant]
     Dates: start: 20220422
  8. SULFAMETHOXAZOLE\TRIMETHOPRIM [Concomitant]
     Active Substance: SULFAMETHOXAZOLE\TRIMETHOPRIM
     Dates: start: 20220422
  9. TACROLIMUS [Concomitant]
     Active Substance: TACROLIMUS
     Dates: start: 20220422
  10. VALACYCLOVIR HYDROCHLORIDE [Concomitant]
     Active Substance: VALACYCLOVIR HYDROCHLORIDE
     Dates: start: 20220422
  11. Aspirin 81mg EC tablet [Concomitant]
     Dates: start: 20220422

REACTIONS (1)
  - Hospitalisation [None]

NARRATIVE: CASE EVENT DATE: 20220505
